FAERS Safety Report 9062172 (Version 1)
Quarter: 2013Q1

REPORT INFORMATION
  Report Type: Spontaneous
  Country: SE (occurrence: SE)
  Receive Date: 20130127
  Receipt Date: 20130127
  Transmission Date: 20140127
  Serious: Yes (Hospitalization)
  Sender: FDA-Public Use
  Company Number: SE-TEVA-381774ISR

PATIENT
  Sex: Female

DRUGS (8)
  1. ENALAPRIL [Suspect]
     Indication: ESSENTIAL HYPERTENSION
  2. CALCICHEW-D3 SPEARMINT [Concomitant]
  3. RANITIDIN [Concomitant]
  4. SIMVASTATIN [Concomitant]
  5. SIFROL [Concomitant]
  6. PANODIL [Concomitant]
     Route: 048
  7. LEVAXIN [Concomitant]
     Route: 048
  8. SELOKENZOC [Concomitant]
     Route: 048

REACTIONS (3)
  - Fatigue [Recovered/Resolved]
  - Malaise [Recovered/Resolved]
  - Hyponatraemia [Not Recovered/Not Resolved]
